FAERS Safety Report 25147305 (Version 1)
Quarter: 2025Q2

REPORT INFORMATION
  Report Type: Report from Study
  Country: US (occurrence: US)
  Receive Date: 20250401
  Receipt Date: 20250401
  Transmission Date: 20250717
  Serious: Yes (Hospitalization, Other)
  Sender: ABBVIE
  Company Number: US-ABBVIE-6199562

PATIENT
  Age: 69 Year
  Sex: Female

DRUGS (1)
  1. RINVOQ [Suspect]
     Active Substance: UPADACITINIB
     Indication: Rheumatoid arthritis
     Route: 048
     Dates: start: 202406, end: 202407

REACTIONS (7)
  - Transient ischaemic attack [Unknown]
  - Blood pressure inadequately controlled [Unknown]
  - Blindness transient [Recovered/Resolved]
  - Balance disorder [Unknown]
  - Cardiac disorder [Recovering/Resolving]
  - Troponin abnormal [Unknown]
  - Psoriasis [Recovered/Resolved]

NARRATIVE: CASE EVENT DATE: 20240101
